FAERS Safety Report 5293644-9 (Version None)
Quarter: 2007Q2

REPORT INFORMATION
  Report Type: 
  Country: None (occurrence: None)
  Receive Date: 20070411
  Receipt Date: 20070330
  Transmission Date: 20071010
  Serious: Yes (Other)
  Sender: FDA-Public Use
  Company Number: GB-ELI_LILLY_AND_COMPANY-GB200704000049

PATIENT
  Age: 64 Year
  Sex: Male

DRUGS (5)
  1. CYMBALTA [Suspect]
     Indication: ANXIETY
     Dosage: 60 MG, UNK
     Route: 048
     Dates: start: 20070305, end: 20070309
  2. LORAZEPAM [Concomitant]
     Indication: ANXIETY
     Dosage: 1 MG, AS NEEDED
     Route: 048
  3. MESALAZINE [Concomitant]
     Indication: IMMUNOSUPPRESSION
     Dosage: 400 MG, 3/D
     Route: 048
  4. PREDNISOLONE [Concomitant]
     Dosage: 5 MG, UNK
     Route: 048
  5. TACROLIMUS [Concomitant]
     Indication: IMMUNOSUPPRESSION
     Dosage: 2 MG, 2/D
     Route: 048

REACTIONS (1)
  - LIVER DISORDER [None]
